FAERS Safety Report 20025752 (Version 1)
Quarter: 2021Q4

REPORT INFORMATION
  Report Type: Spontaneous
  Country: US (occurrence: US)
  Receive Date: 20211102
  Receipt Date: 20211102
  Transmission Date: 20220303
  Serious: No
  Sender: FDA-Public Use
  Company Number: US-PERRIGO-20US014551

PATIENT
  Age: 69 Year
  Sex: Female
  Weight: 72.109 kg

DRUGS (7)
  1. ERYTHROMYCIN [Suspect]
     Active Substance: ERYTHROMYCIN
     Indication: Eye disorder
     Dosage: SMALL AMOUNT, TID
     Route: 047
     Dates: start: 20200924, end: 20200929
  2. INDAPAMIDE [Concomitant]
     Active Substance: INDAPAMIDE
     Indication: Fluid retention
     Dosage: 2.5 MG, QD
     Route: 065
  3. INDAPAMIDE [Concomitant]
     Active Substance: INDAPAMIDE
     Indication: Hypertension
  4. SUCRALFATE [Concomitant]
     Active Substance: SUCRALFATE
     Indication: Gastrointestinal disorder
     Dosage: 1 MG, TID
     Route: 065
     Dates: start: 20200911
  5. PANTOPRAZOLE [Concomitant]
     Active Substance: PANTOPRAZOLE
     Indication: Gastrointestinal disorder
     Dosage: 4 MG, QD
     Route: 065
     Dates: start: 20200917
  6. TRAMADOL [Concomitant]
     Active Substance: TRAMADOL
     Indication: Arthralgia
     Dosage: Q6H, PRN
     Route: 065
  7. TYLENOL                            /00020001/ [Concomitant]
     Indication: Arthralgia
     Dosage: UNK, PRN
     Route: 065

REACTIONS (13)
  - Pruritus [Recovered/Resolved]
  - Swelling [Recovering/Resolving]
  - Erythema [Recovering/Resolving]
  - Stomatitis [Not Recovered/Not Resolved]
  - Oral discomfort [Not Recovered/Not Resolved]
  - Hypoaesthesia oral [Not Recovered/Not Resolved]
  - Dry mouth [Not Recovered/Not Resolved]
  - Glossitis [Not Recovered/Not Resolved]
  - Tongue discomfort [Not Recovered/Not Resolved]
  - Hypoaesthesia oral [Not Recovered/Not Resolved]
  - Tongue dry [Not Recovered/Not Resolved]
  - Ageusia [Recovering/Resolving]
  - Hypersensitivity [Not Recovered/Not Resolved]

NARRATIVE: CASE EVENT DATE: 20200928
